FAERS Safety Report 16468093 (Version 1)
Quarter: 2019Q2

REPORT INFORMATION
  Report Type: Spontaneous
  Country: US (occurrence: US)
  Receive Date: 20190513
  Receipt Date: 20190513
  Transmission Date: 20190711
  Serious: Yes (Other)
  Sender: FDA-Public Use
  Company Number: None

PATIENT
  Age: 13 Year
  Sex: Male

DRUGS (8)
  1. PED MULTIVITAMIN [Concomitant]
  2. VENTOLIN HHFA [Concomitant]
  3. OPSUMIT [Suspect]
     Active Substance: MACITENTAN
     Indication: PULMONARY ARTERIAL HYPERTENSION
     Route: 048
     Dates: start: 201712
  4. FLOVENT HFA [Concomitant]
     Active Substance: FLUTICASONE PROPIONATE
  5. COENZYME Q10 [Concomitant]
     Active Substance: UBIDECARENONE
  6. CANLLIATIDIN 0.7% TOP SOLN [Concomitant]
  7. SILDENAFIL. [Concomitant]
     Active Substance: SILDENAFIL
  8. IRON MINERALS [Concomitant]

REACTIONS (2)
  - Dyspnoea [None]
  - Chest pain [None]

NARRATIVE: CASE EVENT DATE: 20190425
